FAERS Safety Report 5385077-1 (Version None)
Quarter: 2007Q3

REPORT INFORMATION
  Report Type: 
  Country: None (occurrence: None)
  Receive Date: 20070710
  Receipt Date: 20070710
  Transmission Date: 20080115
  Serious: Yes (Other)
  Sender: FDA-Public Use
  Company Number: None

PATIENT
  Sex: Female
  Weight: 82.7815 kg

DRUGS (1)
  1. METHYLENE BLUE [Suspect]
     Indication: PARATHYROID DISORDER
     Dosage: 7.5 MG/KG ONCE IV DRIP
     Route: 041
     Dates: start: 20070501, end: 20070501

REACTIONS (3)
  - PHOTOSENSITIVITY REACTION [None]
  - SKIN EXFOLIATION [None]
  - SKIN LESION [None]
